FAERS Safety Report 9106440 (Version 1)
Quarter: 2013Q1

REPORT INFORMATION
  Report Type: Spontaneous
  Country: US (occurrence: US)
  Receive Date: 20130219
  Receipt Date: 20130219
  Transmission Date: 20140127
  Serious: Yes (Other)
  Sender: FDA-Public Use
  Company Number: US-BAYER-2013-020992

PATIENT
  Sex: Female

DRUGS (1)
  1. BAYER CHEWABLE LOW DOSE BABY ASPIRIN TABLET ORANGE [Suspect]
     Dosage: 1 DF, UNK
     Route: 048

REACTIONS (2)
  - Haemorrhage [Not Recovered/Not Resolved]
  - Epistaxis [Not Recovered/Not Resolved]
